FAERS Safety Report 14008753 (Version 2)
Quarter: 2017Q4

REPORT INFORMATION
  Report Type: Report from Study
  Country: US (occurrence: US)
  Receive Date: 20170925
  Receipt Date: 20171012
  Transmission Date: 20180321
  Serious: Yes (Hospitalization, Other)
  Sender: FDA-Public Use
  Company Number: US-BRISTOL-MYERS SQUIBB COMPANY-BMS-2017-084339

PATIENT
  Sex: Female

DRUGS (1)
  1. NIVOLUMAB [Suspect]
     Active Substance: NIVOLUMAB
     Indication: NON-SMALL CELL LUNG CANCER
     Route: 042

REACTIONS (9)
  - Dry skin [Unknown]
  - Diarrhoea [Unknown]
  - Pruritus [Unknown]
  - Vertigo [Unknown]
  - Blood thyroid stimulating hormone increased [Unknown]
  - Muscular weakness [Unknown]
  - Immobile [Unknown]
  - Autoimmune thyroiditis [Unknown]
  - Weight decreased [Unknown]
